FAERS Safety Report 20899806 (Version 1)
Quarter: 2022Q2

REPORT INFORMATION
  Report Type: Spontaneous
  Country: CA (occurrence: CA)
  Receive Date: 20220601
  Receipt Date: 20220601
  Transmission Date: 20220721
  Serious: Yes (Other)
  Sender: FDA-Public Use
  Company Number: CA-JNJFOC-20220558164

PATIENT
  Sex: Male

DRUGS (6)
  1. ULTRAM [Suspect]
     Active Substance: TRAMADOL HYDROCHLORIDE
     Indication: Product used for unknown indication
     Route: 048
  2. BUTRANS [Suspect]
     Active Substance: BUPRENORPHINE
     Indication: Product used for unknown indication
     Route: 062
  3. DILAUDID [Suspect]
     Active Substance: HYDROMORPHONE HYDROCHLORIDE
     Indication: Product used for unknown indication
     Route: 048
  4. HYDROMORPHONE HYDROCHLORIDE [Suspect]
     Active Substance: HYDROMORPHONE HYDROCHLORIDE
     Indication: Product used for unknown indication
     Route: 048
  5. OXYCODONE HYDROCHLORIDE [Suspect]
     Active Substance: OXYCODONE HYDROCHLORIDE
     Indication: Product used for unknown indication
     Route: 048
  6. OXYCONTIN [Suspect]
     Active Substance: OXYCODONE HYDROCHLORIDE
     Indication: Product used for unknown indication
     Route: 048

REACTIONS (20)
  - Loss of consciousness [Unknown]
  - Erectile dysfunction [Unknown]
  - Affective disorder [Unknown]
  - Emotional disorder [Unknown]
  - Feeling abnormal [Unknown]
  - Hyperaesthesia [Unknown]
  - Increased appetite [Unknown]
  - Irritability [Unknown]
  - Miliaria [Unknown]
  - Muscle tightness [Unknown]
  - Overdose [Unknown]
  - Suicidal ideation [Unknown]
  - Drug dependence [Unknown]
  - Constipation [Unknown]
  - Depression [Unknown]
  - Disturbance in attention [Unknown]
  - Fatigue [Unknown]
  - Hyperhidrosis [Unknown]
  - Palpitations [Unknown]
  - Pruritus [Unknown]
